FAERS Safety Report 20825505 (Version 1)
Quarter: 2022Q2

REPORT INFORMATION
  Report Type: Spontaneous
  Country: DE (occurrence: DE)
  Receive Date: 20220513
  Receipt Date: 20220513
  Transmission Date: 20220721
  Serious: Yes (Other)
  Sender: FDA-Public Use
  Company Number: DE-drreddys-LIT/GER/22/0149905

PATIENT
  Age: 34 Year
  Sex: Female
  Weight: 102 kg

DRUGS (6)
  1. ARIPIPRAZOLE [Suspect]
     Active Substance: ARIPIPRAZOLE
     Indication: Psychotic disorder
  2. QUETIAPINE [Suspect]
     Active Substance: QUETIAPINE
     Indication: Psychotic disorder
  3. OLANZAPINE [Suspect]
     Active Substance: OLANZAPINE
     Indication: Psychotic disorder
     Dosage: 0-0-0-5 MG
  4. OLANZAPINE [Suspect]
     Active Substance: OLANZAPINE
     Dosage: FIRST HALVED FOR 3 DAYS
  5. RISPERIDONE [Suspect]
     Active Substance: RISPERIDONE
     Indication: Psychotic disorder
     Dosage: 2-0-0-2 MG
  6. HALOPERIDOL [Suspect]
     Active Substance: HALOPERIDOL
     Indication: Psychotic disorder

REACTIONS (4)
  - Memory impairment [Unknown]
  - Extrapyramidal disorder [Unknown]
  - Obesity [Recovering/Resolving]
  - Drug ineffective [Unknown]
